FAERS Safety Report 4915388-2 (Version None)
Quarter: 2006Q1

REPORT INFORMATION
  Report Type: 
  Country: None (occurrence: None)
  Receive Date: 20060217
  Receipt Date: 20050602
  Transmission Date: 20060701
  Serious: Yes (Hospitalization)
  Sender: FDA-Public Use
  Company Number: US-MERCK-0506USA00718

PATIENT
  Age: 32 Year
  Sex: Female
  Weight: 77 kg

DRUGS (7)
  1. VIOXX [Suspect]
     Indication: MONARTHRITIS
     Route: 048
     Dates: start: 20010615, end: 20040826
  2. PLAQUENIL [Concomitant]
     Route: 065
  3. TRAZODONE HYDROCHLORIDE [Concomitant]
     Route: 065
  4. COUMADIN [Concomitant]
     Route: 065
  5. ULTRAM [Concomitant]
     Route: 065
  6. PROVENTIL [Concomitant]
     Route: 065
  7. FLOVENT [Concomitant]
     Route: 065

REACTIONS (12)
  - APPENDICECTOMY [None]
  - CEREBRAL DISORDER [None]
  - CHOLECYSTECTOMY [None]
  - DEEP VEIN THROMBOSIS [None]
  - DILATATION VENTRICULAR [None]
  - DYSFUNCTIONAL UTERINE BLEEDING [None]
  - FACIAL PALSY [None]
  - GALLBLADDER DISORDER [None]
  - GASTROINTESTINAL DISORDER [None]
  - INJURY [None]
  - PULMONARY EMBOLISM [None]
  - UTERINE HAEMORRHAGE [None]
